FAERS Safety Report 5422213-2 (Version None)
Quarter: 2007Q3

REPORT INFORMATION
  Report Type: 
  Country: None (occurrence: None)
  Receive Date: 20070817
  Receipt Date: 20070810
  Transmission Date: 20080115
  Serious: Yes (Death, Hospitalization, Other)
  Sender: FDA-Public Use
  Company Number: 200714176GDDC

PATIENT
  Age: 62 Year
  Sex: Male
  Weight: 60 kg

DRUGS (6)
  1. CISPLATIN [Suspect]
     Indication: NEOPLASM MALIGNANT
     Dosage: CYC IV
     Route: 042
     Dates: start: 20041229, end: 20041229
  2. RADIOTHERAPY [Suspect]
     Indication: NEOPLASM MALIGNANT
     Dates: start: 20041228, end: 20050209
  3. LORAZEPAM [Concomitant]
  4. MORPHINE [Concomitant]
  5. METAMIZOL [Concomitant]
  6. PARACETAMOL [Concomitant]

REACTIONS (5)
  - DRUG TOXICITY [None]
  - DYSPHAGIA [None]
  - HAEMORRHAGE [None]
  - MUCOSAL INFLAMMATION [None]
  - ULCER HAEMORRHAGE [None]
